FAERS Safety Report 8768122 (Version 2)
Quarter: 2012Q4

REPORT INFORMATION
  Report Type: 
  Country: US (occurrence: US)
  Receive Date: 20120905
  Receipt Date: 20121107
  Transmission Date: 20130627
  Serious: Yes (Hospitalization)
  Sender: FDA-Public Use
  Company Number: US-GLAXOSMITHKLINE-A0814954A

PATIENT
  Age: 46 Year
  Sex: Male

DRUGS (1)
  1. AVANDIA [Suspect]
     Indication: TYPE 2 DIABETES MELLITUS
     Dosage: 4MG Per day
     Route: 048
     Dates: start: 20021121, end: 2007

REACTIONS (7)
  - Myocardial infarction [Not Recovered/Not Resolved]
  - Cardiac failure congestive [Unknown]
  - Cardiomyopathy [Unknown]
  - Ventricular tachycardia [Unknown]
  - Atrial fibrillation [Unknown]
  - Atrial flutter [Unknown]
  - Mitral valve disease [Unknown]
